FAERS Safety Report 6645907-X (Version None)
Quarter: 2010Q1

REPORT INFORMATION
  Report Type: 
  Country: None (occurrence: None)
  Receive Date: 20100323
  Receipt Date: 20100312
  Transmission Date: 20100710
  Serious: Yes (Hospitalization)
  Sender: FDA-Public Use
  Company Number: PHHY2010CA15350

PATIENT
  Age: 21 Year
  Sex: Female

DRUGS (1)
  1. GLEEVEC [Suspect]

REACTIONS (5)
  - CHROMOSOME ANALYSIS ABNORMAL [None]
  - FOREIGN BODY [None]
  - NAUSEA [None]
  - VASCULITIS CEREBRAL [None]
  - VOMITING [None]
